FAERS Safety Report 7496094-X (Version None)
Quarter: 2011Q2

REPORT INFORMATION
  Report Type: 
  Country: None (occurrence: None)
  Receive Date: 20110523
  Receipt Date: 20110513
  Transmission Date: 20111010
  Serious: Yes (Hospitalization, Other)
  Sender: FDA-Public Use
  Company Number: US-ASTRAZENECA-2011SE29135

PATIENT
  Age: 33 Year
  Sex: Male
  Weight: 74.8 kg

DRUGS (8)
  1. LAMICTAL [Concomitant]
  2. ZOLOFT [Concomitant]
  3. KLONOPIN [Concomitant]
  4. MELATONIN [Concomitant]
     Indication: INSOMNIA
  5. DEPAKOTE [Concomitant]
     Dates: start: 20090701
  6. SEROQUEL [Suspect]
     Indication: BIPOLAR DISORDER
     Route: 048
     Dates: start: 20090701
  7. PRILOSEC [Concomitant]
  8. SEROQUEL [Suspect]
     Route: 048
     Dates: start: 20090701

REACTIONS (3)
  - MANIA [None]
  - INCORRECT DOSE ADMINISTERED [None]
  - ULCER HAEMORRHAGE [None]
